FAERS Safety Report 11972850 (Version 1)
Quarter: 2016Q1

REPORT INFORMATION
  Report Type: Spontaneous
  Country: CA (occurrence: CA)
  Receive Date: 20160128
  Receipt Date: 20160128
  Transmission Date: 20160526
  Serious: Yes (Other)
  Sender: FDA-Public Use
  Company Number: CA-TEVA-628509ACC

PATIENT
  Age: 81 Year
  Sex: Male
  Weight: 77 kg

DRUGS (6)
  1. COLACE [Concomitant]
     Active Substance: DOCUSATE SODIUM
  2. PANTOLOC [Concomitant]
     Active Substance: PANTOPRAZOLE SODIUM
  3. CLOPIDOGREL [Suspect]
     Active Substance: CLOPIDOGREL BISULFATE
     Indication: PRODUCT USED FOR UNKNOWN INDICATION
     Dosage: 75 MILLIGRAM DAILY;
     Route: 048
  4. ATIVAN [Concomitant]
     Active Substance: LORAZEPAM
  5. MOTILIUM TAB 10MG [Concomitant]
  6. ASA [Concomitant]
     Active Substance: ASPIRIN

REACTIONS (1)
  - Eosinophil count increased [Unknown]
